FAERS Safety Report 8778279 (Version 4)
Quarter: 2013Q2

REPORT INFORMATION
  Report Type: Report from Study
  Country: JP (occurrence: JP)
  Receive Date: 20120911
  Receipt Date: 20130610
  Transmission Date: 20140414
  Serious: Yes (Other)
  Sender: FDA-Public Use
  Company Number: JP-009507513-2012SP020558

PATIENT
  Age: 67 Year
  Sex: Female
  Weight: 53 kg

DRUGS (17)
  1. PEGINTRON [Suspect]
     Indication: CHRONIC HEPATITIS C
     Dosage: 1.5 MICROGRAM PER KILOGRAM, QW
     Route: 058
     Dates: start: 20120217, end: 20120329
  2. PEGINTRON [Suspect]
     Dosage: 1.3 MICROGRAM PER KILOGRAM, QW
     Route: 058
     Dates: start: 20120330
  3. PEGINTRON [Suspect]
     Dosage: 1.13 MICROGRAM PER KILOGRAM, QW
     Route: 058
     Dates: end: 20120405
  4. PEGINTRON [Suspect]
     Dosage: 0.94 MICROGRAM PER KILOGRAM, QW
     Route: 058
     Dates: start: 20120406, end: 20120426
  5. PEGINTRON [Suspect]
     Dosage: 1.13 MICROGRAM PER KILOGRAM, QW
     Route: 058
     Dates: start: 20120427, end: 20120510
  6. PEGINTRON [Suspect]
     Dosage: 1.3 MICROGRAM PER KILOGRAM, QW
     Route: 058
     Dates: start: 20120511, end: 20120802
  7. REBETOL [Suspect]
     Indication: CHRONIC HEPATITIS C
     Dosage: 600 MG, QD
     Route: 048
     Dates: start: 20120217, end: 20120223
  8. REBETOL [Suspect]
     Dosage: 400 MG, QD
     Route: 048
     Dates: start: 20120224, end: 20120315
  9. REBETOL [Suspect]
     Dosage: 200 MG, QD
     Route: 048
     Dates: start: 20120316, end: 20120419
  10. REBETOL [Suspect]
     Dosage: 400 MG, QD
     Route: 048
     Dates: start: 20120420, end: 20120802
  11. TELAVIC [Suspect]
     Indication: CHRONIC HEPATITIS C
     Dosage: 2250 MG, QD
     Route: 048
     Dates: start: 20120217, end: 20120223
  12. TELAVIC [Suspect]
     Dosage: 1500 MG, QD
     Route: 048
     Dates: start: 20120224, end: 20120322
  13. TELAVIC [Suspect]
     Dosage: 750 MG, QD
     Route: 048
     Dates: start: 20120323, end: 20120413
  14. URSO [Concomitant]
     Indication: CHRONIC HEPATITIS C
     Dosage: 600 MG, QD, FORMULATION: POR
     Route: 048
     Dates: end: 20120224
  15. DIOVAN [Concomitant]
     Indication: HYPERTENSION
     Dosage: 80 MG, QD, FORMULATION: POR
     Route: 048
  16. AMLODIN (AMLODIPINE BESYLATE) [Concomitant]
     Indication: HYPERTENSION
     Dosage: 5 MG, QD, FORMULATION: POR
     Route: 048
  17. HORMONES (UNSPECIFIED) [Concomitant]
     Indication: DIABETES MELLITUS
     Dosage: 15 DF, QD
     Route: 058

REACTIONS (7)
  - Renal impairment [Recovered/Resolved]
  - Hyperuricaemia [Recovered/Resolved]
  - Nausea [Recovered/Resolved]
  - Decreased appetite [Recovered/Resolved]
  - Anaemia [Recovered/Resolved]
  - Platelet count decreased [Recovered/Resolved]
  - Anaemia [Not Recovered/Not Resolved]
